FAERS Safety Report 17461733 (Version 1)
Quarter: 2020Q1

REPORT INFORMATION
  Report Type: Spontaneous
  Country: US (occurrence: US)
  Receive Date: 20200226
  Receipt Date: 20200226
  Transmission Date: 20200409
  Serious: Yes (Hospitalization)
  Sender: FDA-Public Use
  Company Number: None

PATIENT
  Age: 79 Year
  Sex: Female

DRUGS (2)
  1. SEPTRA [Suspect]
     Active Substance: SULFAMETHOXAZOLE\TRIMETHOPRIM
     Indication: CYST
     Route: 048
     Dates: start: 20191210, end: 20191218
  2. VANCOMYCIN [Suspect]
     Active Substance: VANCOMYCIN
     Dosage: ?          OTHER FREQUENCY:ONCE;?
     Route: 042
     Dates: start: 20191217, end: 20191217

REACTIONS (5)
  - Erythema [None]
  - Neutropenia [None]
  - Platelet count decreased [None]
  - Pyrexia [None]
  - Asthenia [None]

NARRATIVE: CASE EVENT DATE: 20191218
